FAERS Safety Report 15703021 (Version 1)
Quarter: 2018Q4

REPORT INFORMATION
  Report Type: Spontaneous
  Country: KR (occurrence: KR)
  Receive Date: 20181210
  Receipt Date: 20181210
  Transmission Date: 20190205
  Serious: Yes (Other)
  Sender: FDA-Public Use
  Company Number: KR-STRIDES ARCOLAB LIMITED-2018SP010250

PATIENT
  Age: 25 Year
  Sex: Male

DRUGS (1)
  1. DUTASTERIDE. [Suspect]
     Active Substance: DUTASTERIDE
     Indication: ALOPECIA
     Dosage: 0.5 MG, QOD
     Route: 065

REACTIONS (4)
  - Diplopia [Recovered/Resolved]
  - Off label use [Unknown]
  - Cerebral venous thrombosis [Unknown]
  - Headache [Recovered/Resolved]
